FAERS Safety Report 9936658 (Version 1)
Quarter: 2014Q1

REPORT INFORMATION
  Report Type: Spontaneous
  Country: US (occurrence: US)
  Receive Date: 20140228
  Receipt Date: 20140228
  Transmission Date: 20141002
  Serious: No
  Sender: FDA-Public Use
  Company Number: US-SANOFI-AVENTIS-2013SA026228

PATIENT
  Age: 72 Year
  Sex: Female

DRUGS (1)
  1. DIABETA [Suspect]
     Indication: TYPE 2 DIABETES MELLITUS
     Route: 048
     Dates: start: 201302

REACTIONS (2)
  - Muscle spasms [Recovered/Resolved]
  - Adverse event [Recovered/Resolved]
